FAERS Safety Report 25994849 (Version 1)
Quarter: 2025Q4

REPORT INFORMATION
  Report Type: Spontaneous
  Country: EU (occurrence: EU)
  Receive Date: 20251104
  Receipt Date: 20251104
  Transmission Date: 20260118
  Serious: Yes (Death)
  Sender: ROCHE
  Company Number: None

PATIENT
  Age: 33 Year
  Sex: Female

DRUGS (7)
  1. BEVACIZUMAB [Suspect]
     Active Substance: BEVACIZUMAB
     Indication: Nelson^s syndrome
     Dosage: TWO CYCLES
     Route: 065
  2. CABERGOLINE [Concomitant]
     Active Substance: CABERGOLINE
     Dosage: 3 MILLIGRAM, QWK
  3. KETOCONAZOLE [Concomitant]
     Active Substance: KETOCONAZOLE
  4. TEMOZOLOMIDE [Concomitant]
     Active Substance: TEMOZOLOMIDE
     Dosage: 200 MILLIGRAM/SQ. METER, FOR 5 DAYS EVERY 28 DAYS
     Route: 048
  5. TEMOZOLOMIDE [Concomitant]
     Active Substance: TEMOZOLOMIDE
     Dosage: 40 MILLIGRAM, QD
     Route: 048
     Dates: start: 202206
  6. PASIREOTIDE [Concomitant]
     Active Substance: PASIREOTIDE
     Dosage: 40 MILLIGRAM, QMO
  7. EVEROLIMUS [Concomitant]
     Active Substance: EVEROLIMUS
     Dosage: FOUR CYCLES

REACTIONS (3)
  - Nelson^s syndrome [Fatal]
  - General physical health deterioration [Unknown]
  - Off label use [Unknown]
